FAERS Safety Report 8603352 (Version 4)
Quarter: 2013Q4

REPORT INFORMATION
  Report Type: Spontaneous
  Country: None (occurrence: None)
  Receive Date: 20120525
  Receipt Date: 20131015
  Transmission Date: 20140711
  Serious: Yes (Death, Life-Threatening, Other)
  Sender: FDA-Public Use
  Company Number: AUR-APL-2012-02243

PATIENT
  Age: 70 Year
  Sex: Female
  Weight: 80 kg

DRUGS (8)
  1. CIPROFLOXACIN [Suspect]
     Indication: INFECTION
     Dosage: 2 DOSAGE FORMS (1 DOSAGE FORMS, 2 IN 1 D)
     Route: 048
     Dates: start: 20110329, end: 20120405
  2. PIPERACILLIN AND TAZOBACTAM [Suspect]
     Indication: INFECTION
     Dosage: 9 GM (4.5 GM, 2 IN 1 D)
     Route: 042
     Dates: start: 20120405
  3. METHOTREXATE [Suspect]
     Indication: PSORIATIC ARTHROPATHY
     Dosage: 20 MG, 1 IN 1 WK, ORAL
     Route: 048
     Dates: end: 20120407
  4. ALLOPURINOL [Concomitant]
  5. CIPROFLOXACIN (CIPROFLOXACIN) [Concomitant]
  6. GENTAMICIN (GENTAMICIN) [Concomitant]
  7. RIFAMPICIN [Concomitant]
  8. TEICOPLANIN (TEICOPLANIN) [Concomitant]

REACTIONS (12)
  - Renal failure acute [None]
  - Haemodialysis [None]
  - Arthritis bacterial [None]
  - Tachycardia [None]
  - Hepatic function abnormal [None]
  - Pancytopenia [None]
  - Drug interaction [None]
  - General physical health deterioration [None]
  - Stevens-Johnson syndrome [None]
  - Drug level increased [None]
  - Pain [None]
  - Refusal of treatment by patient [None]
